FAERS Safety Report 25150535 (Version 1)
Quarter: 2025Q2

REPORT INFORMATION
  Report Type: Report from Study
  Country: US (occurrence: US)
  Receive Date: 20250402
  Receipt Date: 20250402
  Transmission Date: 20250717
  Serious: Yes (Other)
  Sender: ALEXION PHARMACEUTICALS
  Company Number: US-AstraZeneca-CH-00835203A

PATIENT
  Age: 66 Year

DRUGS (2)
  1. STRENSIQ [Suspect]
     Active Substance: ASFOTASE ALFA
     Indication: Hypophosphatasia
     Dosage: 2 MILLIGRAM/KILOGRAM, TIW
  2. STRENSIQ [Suspect]
     Active Substance: ASFOTASE ALFA
     Indication: Phosphorus metabolism disorder

REACTIONS (6)
  - Weight decreased [Unknown]
  - Eyelid calcification [Unknown]
  - Myalgia [Not Recovered/Not Resolved]
  - Bone pain [Unknown]
  - Blood calcium increased [Unknown]
  - Musculoskeletal pain [Unknown]
